FAERS Safety Report 9419836 (Version 1)
Quarter: 2013Q3

REPORT INFORMATION
  Report Type: Spontaneous
  Country: US (occurrence: None)
  Receive Date: 20130723
  Receipt Date: 20130723
  Transmission Date: 20140515
  Serious: Yes (Hospitalization)
  Sender: FDA-Public Use
  Company Number: FK201302609

PATIENT
  Age: 61 Year
  Sex: Female

DRUGS (2)
  1. DEXAMETHASONE SODIUM PHOSPHATE [Suspect]
     Indication: ARTHRALGIA
     Dosage: FLUORO GUIDED HIP INJECTION
     Dates: start: 20130618, end: 20130618
  2. NAROPIN [Suspect]
     Indication: ARTHRALGIA
     Dosage: FLUORO GUIDED HIP INJECTION
     Dates: start: 20130618, end: 20130618

REACTIONS (1)
  - Streptococcal infection [None]
